FAERS Safety Report 7401702-5 (Version None)
Quarter: 2011Q1

REPORT INFORMATION
  Report Type: 
  Country: None (occurrence: None)
  Receive Date: 20110329
  Receipt Date: 20110321
  Transmission Date: 20110831
  Serious: Yes (Death)
  Sender: FDA-Public Use
  Company Number: 1000019486

PATIENT
  Age: 79 Year
  Sex: Male

DRUGS (6)
  1. KARDEGIC (ASPIRIN LYSINE) (ASPIRIN LYSINE) [Concomitant]
  2. EXELON [Suspect]
     Dosage: 9.5  MG (9.5 MG, 1 IN 1 D), CUTANEOUS
     Route: 003
     Dates: end: 20110201
  3. ATENOLOL [Suspect]
     Dosage: 25 MG (25 MG, 1 IN 1 D), ORAL
     Route: 048
     Dates: end: 20110201
  4. MEMANTINE [Suspect]
     Indication: DEMENTIA ALZHEIMER'S TYPE
     Dosage: 20 MG (20 MG, 1 IN 1 D), ORAL
     Route: 048
     Dates: end: 20110201
  5. VALPROATE SODIUM [Concomitant]
  6. ATORVASTATIN (ATORVASTATIN) (ATORVASTATIN) [Concomitant]

REACTIONS (8)
  - FALL [None]
  - HYPOTONIA [None]
  - GAIT DISTURBANCE [None]
  - HYPOTENSION [None]
  - C-REACTIVE PROTEIN INCREASED [None]
  - EPILEPSY [None]
  - ASTHENIA [None]
  - SUDDEN DEATH [None]
